FAERS Safety Report 7830752-X (Version None)
Quarter: 2011Q4

REPORT INFORMATION
  Report Type: 
  Country: None (occurrence: None)
  Receive Date: 20111021
  Receipt Date: 20111012
  Transmission Date: 20120403
  Serious: Yes (Other)
  Sender: FDA-Public Use
  Company Number: US-GLAXOSMITHKLINE-A0845019A

PATIENT
  Age: 52 Year
  Sex: Female
  Weight: 131.8 kg

DRUGS (4)
  1. GLYBURIDE [Concomitant]
  2. AVANDIA [Suspect]
     Indication: DIABETES MELLITUS
     Route: 048
     Dates: start: 20000526, end: 20010511
  3. MAXZIDE [Concomitant]
  4. LASIX [Concomitant]

REACTIONS (3)
  - DEFORMITY [None]
  - OEDEMA [None]
  - WEIGHT INCREASED [None]
